FAERS Safety Report 25161388 (Version 1)
Quarter: 2025Q2

REPORT INFORMATION
  Report Type: Spontaneous
  Country: US (occurrence: None)
  Receive Date: 20250403
  Receipt Date: 20250403
  Transmission Date: 20250717
  Serious: No
  Sender: FDA-CTU
  Company Number: None

PATIENT
  Age: 71 Year
  Sex: Female
  Weight: 45.9 kg

DRUGS (1)
  1. DOXORUBICIN [Suspect]
     Active Substance: DOXORUBICIN

REACTIONS (4)
  - Muscle spasms [None]
  - Cyanosis [None]
  - Cyanosis [None]
  - Infusion related reaction [None]

NARRATIVE: CASE EVENT DATE: 20250307
